FAERS Safety Report 6830101-X (Version None)
Quarter: 2010Q3

REPORT INFORMATION
  Report Type: 
  Country: None (occurrence: None)
  Receive Date: 20100711
  Receipt Date: 20100519
  Transmission Date: 20110219
  Serious: No
  Sender: FDA-Public Use
  Company Number: US-ALLERGAN-1006619US

PATIENT
  Age: 55 Year
  Sex: Female

DRUGS (6)
  1. LATISSE [Suspect]
     Indication: GROWTH OF EYELASHES
     Dosage: 1 GTT, QHS
     Route: 061
     Dates: start: 20090701
  2. LAMITOL [Concomitant]
  3. LEVOXYL [Concomitant]
  4. BIOTIN [Concomitant]
     Dosage: UNK
  5. DAILY VITAMINS [Concomitant]
     Dosage: UNK
  6. FISH OIL [Concomitant]

REACTIONS (3)
  - DRUG INEFFECTIVE [None]
  - INCORRECT DOSE ADMINISTERED [None]
  - MADAROSIS [None]
